FAERS Safety Report 10009460 (Version 1)
Quarter: 2014Q1

REPORT INFORMATION
  Report Type: Report from Study
  Country: US (occurrence: US)
  Receive Date: 20140313
  Receipt Date: 20140313
  Transmission Date: 20141002
  Serious: Yes (Hospitalization)
  Sender: FDA-Public Use
  Company Number: US-B.I. PHARMACEUTICALS,INC./RIDGEFIELD-2014-BI-10414BI

PATIENT
  Age: 64 Year
  Sex: Female
  Weight: 86.6 kg

DRUGS (21)
  1. DABIGATRAN [Suspect]
     Indication: ATRIAL FIBRILLATION
     Dosage: 300 MG
     Route: 048
     Dates: start: 20111031, end: 20111212
  2. VIT D [Concomitant]
     Indication: VITAMIN SUPPLEMENTATION
     Dosage: 2000 U
     Route: 048
     Dates: start: 20111217
  3. POTASSIUM GLUCONATE [Concomitant]
     Indication: SUPPLEMENTATION THERAPY
     Dosage: 595 MG
     Route: 048
  4. ALBUTEROL (PROVENTIL HFA; VENTOLIN HFA) 108 (90BASE) [Concomitant]
     Indication: ASTHMA
     Dosage: FORMULATION: INHALER DOSE PER APPLICATION/DAILY DOSE 2PUFFS EVERY 6 HOURS PRN
     Route: 055
  5. MAALOX 200-10-200-20/MG/5ML SUSP [Concomitant]
     Indication: GASTROOESOPHAGEAL REFLUX DISEASE
     Dosage: DOSE PER APPLICATION/DAILY DOSE: 30ML EVERY 6 HOURS PRN
     Route: 048
  6. ZYRTEC [Concomitant]
     Indication: HYPERSENSITIVITY
     Dosage: 10 MG
     Route: 048
  7. NEXIUM [Concomitant]
     Indication: GASTROOESOPHAGEAL REFLUX DISEASE
     Dosage: 40 MG
     Route: 048
     Dates: start: 20081118
  8. NEXIUM [Concomitant]
     Indication: DYSPEPSIA
  9. FLONASE [Concomitant]
     Indication: ASTHMA
     Dosage: FORMULATIUON/ROUTE: NASAL SPRAY DOSE PER APPLICATION/DAILY DOSE: 50MCG/ACT 2 SPRAYS DAILY PRN
  10. NIZORAL [Concomitant]
     Indication: SKIN CANDIDA
     Dosage: DOSE PER APPLICATION/DAILY DOSE: 2% CREAM PRN
     Route: 061
  11. LOPRESSOR [Concomitant]
     Indication: HYPERTENSION
     Dosage: 200 MG
     Route: 048
  12. ZOCOR [Concomitant]
     Indication: BLOOD CHOLESTEROL
     Dosage: 40 MG
     Route: 048
     Dates: start: 20080514
  13. ASPIRIN [Concomitant]
     Indication: PROPHYLAXIS
     Dosage: 81 MG
     Route: 048
  14. TIKOSYN [Concomitant]
     Indication: ATRIAL FIBRILLATION
     Dosage: 250 MCG
     Route: 048
     Dates: start: 20111113, end: 20111214
  15. TIKOSYN [Concomitant]
     Indication: ARRHYTHMIA
  16. FERATAB [Concomitant]
     Indication: SUPPLEMENTATION THERAPY
     Dosage: 300 MG
     Route: 048
     Dates: start: 20111130
  17. PRINIVIL [Concomitant]
     Indication: HYPERTENSION
     Dosage: 5 MG
     Route: 048
     Dates: start: 20111130
  18. ATIVAN [Concomitant]
     Indication: ANXIETY
     Dosage: 0.5 MG
     Route: 048
  19. ULTRAM [Concomitant]
     Indication: PAIN
     Dosage: 50 MG
     Route: 048
     Dates: start: 20080514
  20. PHENERGAN [Concomitant]
     Indication: MIGRAINE
     Dosage: 12.5 MG
     Route: 048
     Dates: start: 20081118
  21. SENOKOT-S [Concomitant]
     Indication: CONSTIPATION
     Dosage: DOSE PER APPLICATION/DAILY DOSE: 8.6-50MG BID
     Route: 048

REACTIONS (4)
  - Abdominal pain [Recovered/Resolved]
  - Vomiting [Recovered/Resolved]
  - Rectal haemorrhage [Recovered/Resolved]
  - Atrial fibrillation [Recovered/Resolved]
